FAERS Safety Report 24823720 (Version 1)
Quarter: 2025Q1

REPORT INFORMATION
  Report Type: Report from Study
  Country: US (occurrence: US)
  Receive Date: 20250109
  Receipt Date: 20250109
  Transmission Date: 20250409
  Serious: Yes (Other)
  Sender: ABBVIE
  Company Number: US-ABBVIE-6075055

PATIENT
  Age: 75 Year
  Sex: Male

DRUGS (2)
  1. IMBRUVICA [Suspect]
     Active Substance: IBRUTINIB
     Indication: Non-Hodgkin^s lymphoma
     Dosage: STARTED TAKING IMBRUVICA FOR 15-20 YEARS
     Route: 048
     Dates: start: 2005
  2. IMBRUVICA [Suspect]
     Active Substance: IBRUTINIB
     Indication: Non-Hodgkin^s lymphoma
     Route: 048

REACTIONS (5)
  - Deafness bilateral [Unknown]
  - Off label use [Unknown]
  - Drug interaction [Unknown]
  - Product storage error [Unknown]
  - Left atrial appendage closure implant [Unknown]

NARRATIVE: CASE EVENT DATE: 20200101
